FAERS Safety Report 4538189-6 (Version None)
Quarter: 2004Q4

REPORT INFORMATION
  Report Type: 
  Country: None (occurrence: None)
  Receive Date: 20041221
  Receipt Date: 20041207
  Transmission Date: 20050328
  Serious: Yes (Hospitalization)
  Sender: FDA-Public Use
  Company Number: MEDI-0002573

PATIENT
  Age: 16 Month
  Sex: Female
  Weight: 7.8 kg

DRUGS (6)
  1. SYNAGIS [Suspect]
     Indication: ANTIVIRAL PROPHYLAXIS
     Dosage: SEE IMAGE
     Route: 030
     Dates: start: 20041001, end: 20041206
  2. SYNAGIS [Suspect]
     Indication: ANTIVIRAL PROPHYLAXIS
     Dosage: SEE IMAGE
     Route: 030
     Dates: start: 20041001
  3. PULMICORT [Concomitant]
  4. SULBACTAM (SULBACTAM) [Concomitant]
  5. ATROVENT [Concomitant]
  6. NACL (SODIUM CHLORIDE) [Concomitant]

REACTIONS (5)
  - ASPIRATION [None]
  - DEPRESSED LEVEL OF CONSCIOUSNESS [None]
  - ERYTHEMA [None]
  - OXYGEN SATURATION DECREASED [None]
  - VOMITING [None]
